FAERS Safety Report 11784013 (Version 1)
Quarter: 2015Q4

REPORT INFORMATION
  Report Type: Spontaneous
  Country: DE (occurrence: DE)
  Receive Date: 20151128
  Receipt Date: 20151128
  Transmission Date: 20160305
  Serious: Yes (Other)
  Sender: FDA-Public Use
  Company Number: GXKR2015DE005099

PATIENT
  Sex: Female

DRUGS (4)
  1. METOPROLOLSUCCINAT 1A PHARMA [Suspect]
     Active Substance: METOPROLOL SUCCINATE
     Route: 048
  2. ASPIRIN. [Concomitant]
     Active Substance: ASPIRIN
     Route: 048
  3. L-THYROXIN [Concomitant]
     Active Substance: LEVOTHYROXINE SODIUM
     Route: 048
  4. DILTIAGAMMA [Concomitant]
     Route: 048

REACTIONS (1)
  - White blood cell count decreased [Unknown]
